FAERS Safety Report 21920781 (Version 6)
Quarter: 2023Q4

REPORT INFORMATION
  Report Type: Spontaneous
  Country: US (occurrence: US)
  Receive Date: 20230127
  Receipt Date: 20231130
  Transmission Date: 20240110
  Serious: No
  Sender: FDA-Public Use
  Company Number: US-PFIZER INC-PV202300003344

PATIENT
  Age: 69 Year
  Sex: Female
  Weight: 89.342 kg

DRUGS (1)
  1. IBRANCE [Suspect]
     Active Substance: PALBOCICLIB
     Indication: Neoplasm malignant
     Dosage: ONCE DAILY X 21 DAYS FOLLOWED BY 7 DAY BREAK
     Route: 048
     Dates: start: 202108

REACTIONS (2)
  - Malaise [Unknown]
  - Gastroenteritis viral [Unknown]
